FAERS Safety Report 14355310 (Version 3)
Quarter: 2018Q2

REPORT INFORMATION
  Report Type: Spontaneous
  Country: AT (occurrence: AT)
  Receive Date: 20180105
  Receipt Date: 20180419
  Transmission Date: 20180711
  Serious: Yes (Other)
  Sender: FDA-Public Use
  Company Number: AT-PFIZER INC-2017438193

PATIENT
  Age: 42 Year
  Sex: Male
  Weight: 89 kg

DRUGS (30)
  1. SEROQUEL [Suspect]
     Active Substance: QUETIAPINE FUMARATE
     Dosage: UNK
     Dates: start: 20150318
  2. JATROSOM [Suspect]
     Active Substance: TRANYLCYPROMINE SULFATE\TRIFLUOPERAZINE HYDROCHLORIDE
     Dosage: 20 MG, UNK
     Dates: start: 20150407, end: 20150413
  3. DOMINAL (PROTHIPENDYL HYDROCHLORIDE) [Concomitant]
     Active Substance: PROTHIPENDYL HYDROCHLORIDE
     Dosage: 80 UNK, UNK
     Dates: start: 20150413, end: 20150413
  4. CHLORAL HYDRATE [Suspect]
     Active Substance: CHLORAL HYDRATE
     Dosage: 100 MG, 1X/DAY
     Dates: start: 20150322, end: 20150322
  5. DOMINAL (PROTHIPENDYL HYDROCHLORIDE) [Concomitant]
     Active Substance: PROTHIPENDYL HYDROCHLORIDE
     Dosage: 80 MG, UNK
     Dates: start: 20150331, end: 20150331
  6. DOMINAL (PROTHIPENDYL HYDROCHLORIDE) [Concomitant]
     Active Substance: PROTHIPENDYL HYDROCHLORIDE
     Dosage: 80 UNK, UNK
     Dates: start: 20150319, end: 20150319
  7. ZOLDEM [Suspect]
     Active Substance: ZOLPIDEM TARTRATE
     Indication: SLEEP DISORDER
     Dosage: 10 MG, 1X/DAY
     Dates: start: 20150317, end: 20150322
  8. ZOLDEM [Suspect]
     Active Substance: ZOLPIDEM TARTRATE
     Dosage: 20 MG, 1X/DAY
     Dates: start: 20150323, end: 20150329
  9. LYRICA [Suspect]
     Active Substance: PREGABALIN
     Dosage: 375 MG, UNK
     Dates: start: 20150318, end: 20150318
  10. TRITTICO RETARD [Suspect]
     Active Substance: TRAZODONE HYDROCHLORIDE
     Dosage: 450 MG, UNK
     Dates: start: 2015, end: 20150316
  11. AURORIX [Concomitant]
     Active Substance: MOCLOBEMIDE
     Dosage: 900 MG, UNK
     Dates: start: 2015, end: 20150322
  12. DOMINAL (PROTHIPENDYL HYDROCHLORIDE) [Concomitant]
     Active Substance: PROTHIPENDYL HYDROCHLORIDE
     Dosage: 160 MG, UNK
     Dates: start: 20150408, end: 20150408
  13. LYRICA [Suspect]
     Active Substance: PREGABALIN
     Indication: SLEEP DISORDER
     Dosage: 300 MG, UNK
     Route: 065
     Dates: start: 20150317, end: 20150317
  14. FERROGRADUMET [Concomitant]
     Active Substance: FERROUS SULFATE
     Dosage: 1 DF, UNK
  15. LYRICA [Suspect]
     Active Substance: PREGABALIN
     Dosage: 450 MG, QD
     Route: 065
     Dates: start: 20150319
  16. SUBSTITOL [Concomitant]
     Active Substance: MORPHINE SULFATE
     Indication: SLEEP DISORDER
     Dosage: 480 MG, UNK
     Dates: start: 2014
  17. DOMINAL (PROTHIPENDYL HYDROCHLORIDE) [Concomitant]
     Active Substance: PROTHIPENDYL HYDROCHLORIDE
     Dosage: 80 MG, UNK
     Dates: start: 20150409, end: 20150410
  18. DOMINAL (PROTHIPENDYL HYDROCHLORIDE) [Concomitant]
     Active Substance: PROTHIPENDYL HYDROCHLORIDE
     Dosage: 80 MG, UNK
     Dates: start: 20150413, end: 20150413
  19. NICORETTE [Concomitant]
     Active Substance: NICOTINE
     Dosage: 25 MG, EVERY16 HOURS
     Dates: start: 20150321
  20. PANTOLOC [Suspect]
     Active Substance: PANTOPRAZOLE SODIUM
     Indication: SLEEP DISORDER
     Dosage: 40 MG, QD
     Route: 065
     Dates: start: 2015
  21. CHLORAL HYDRATE [Suspect]
     Active Substance: CHLORAL HYDRATE
     Dosage: 300 MG, 1X/DAY
     Dates: start: 20150321, end: 20150321
  22. JATROSOM [Suspect]
     Active Substance: TRANYLCYPROMINE SULFATE\TRIFLUOPERAZINE HYDROCHLORIDE
     Dosage: 10 MG, UNK
     Dates: start: 20150323, end: 20150406
  23. JATROSOM [Suspect]
     Active Substance: TRANYLCYPROMINE SULFATE\TRIFLUOPERAZINE HYDROCHLORIDE
     Dosage: 30 MG, UNK
     Dates: start: 20150414
  24. TRITTICO RETARD [Suspect]
     Active Substance: TRAZODONE HYDROCHLORIDE
     Dosage: 300 MG, UNK
     Dates: start: 20150317
  25. DEPAKINE CRONO [Suspect]
     Active Substance: VALPROIC ACID
     Dosage: 750 MG, UNK
     Dates: start: 2015
  26. SEROQUEL [Suspect]
     Active Substance: QUETIAPINE FUMARATE
     Dosage: 100 MG, UNK
     Dates: start: 20150317, end: 20150317
  27. CHLORAL HYDRATE [Suspect]
     Active Substance: CHLORAL HYDRATE
     Indication: SLEEP DISORDER
     Dosage: 100 MG, 1X/DAY
     Dates: start: 20150320, end: 20150320
  28. DOMINAL (PROTHIPENDYL HYDROCHLORIDE) [Concomitant]
     Active Substance: PROTHIPENDYL HYDROCHLORIDE
     Dosage: 80 MG, UNK
     Dates: start: 20150323, end: 20150323
  29. DOMINAL (PROTHIPENDYL HYDROCHLORIDE) [Concomitant]
     Active Substance: PROTHIPENDYL HYDROCHLORIDE
     Dosage: 80 MG, UNK
     Dates: start: 20150404, end: 20150404
  30. DOMINAL (PROTHIPENDYL HYDROCHLORIDE) [Concomitant]
     Active Substance: PROTHIPENDYL HYDROCHLORIDE
     Dosage: 80 MG, UNK
     Dates: start: 20150323, end: 20150323

REACTIONS (12)
  - Pollakiuria [Unknown]
  - Agitation [Recovered/Resolved]
  - Blood triglycerides increased [Unknown]
  - Blood thyroid stimulating hormone increased [Unknown]
  - Product use in unapproved indication [Unknown]
  - Restlessness [Unknown]
  - Oedema peripheral [Unknown]
  - Disorientation [Recovered/Resolved]
  - Nervousness [Unknown]
  - Blood potassium increased [Unknown]
  - Confusional state [Recovered/Resolved]
  - Depressed mood [Recovered/Resolved]

NARRATIVE: CASE EVENT DATE: 201503
